FAERS Safety Report 17703076 (Version 3)
Quarter: 2020Q2

REPORT INFORMATION
  Report Type: Spontaneous
  Country: US (occurrence: US)
  Receive Date: 20200424
  Receipt Date: 20200506
  Transmission Date: 20200714
  Serious: No
  Sender: FDA-Public Use
  Company Number: US-009507513-2004USA007006

PATIENT
  Age: 37 Year
  Sex: Female
  Weight: 64.86 kg

DRUGS (1)
  1. NEXPLANON [Suspect]
     Active Substance: ETONOGESTREL
     Indication: CONTRACEPTION
     Dosage: 1 IMPLANT, EVERY 3 YEARS
     Route: 059
     Dates: start: 20200408

REACTIONS (3)
  - Implant site erythema [Not Recovered/Not Resolved]
  - Device placement issue [Not Recovered/Not Resolved]
  - Implant site irritation [Not Recovered/Not Resolved]

NARRATIVE: CASE EVENT DATE: 20200408
